FAERS Safety Report 25503281 (Version 7)
Quarter: 2025Q4

REPORT INFORMATION
  Report Type: Spontaneous
  Country: GB (occurrence: GB)
  Receive Date: 20250702
  Receipt Date: 20251020
  Transmission Date: 20260118
  Serious: Yes (Hospitalization, Other)
  Sender: MYLAN
  Company Number: GB-MYLANLABS-2025M1054620

PATIENT
  Sex: Male

DRUGS (17)
  1. CLOZARIL [Suspect]
     Active Substance: CLOZAPINE
     Indication: Schizophrenia
     Dosage: UNK
  2. CLOZARIL [Suspect]
     Active Substance: CLOZAPINE
     Indication: Schizoaffective disorder
     Dosage: UNK
  3. CLOZARIL [Suspect]
     Active Substance: CLOZAPINE
     Dosage: UNK, BID
     Dates: start: 2025, end: 20251007
  4. CLOZARIL [Suspect]
     Active Substance: CLOZAPINE
     Dosage: UNK (LOWER DOSE)
  5. CLOZARIL [Suspect]
     Active Substance: CLOZAPINE
     Dosage: UNK (SMALLER DOSE)
  6. ZUCLOPENTHIXOL DECANOATE [Concomitant]
     Active Substance: ZUCLOPENTHIXOL DECANOATE
     Indication: Schizoaffective disorder
     Dosage: 5000 MILLIGRAM, QW
  7. OLANZAPINE [Concomitant]
     Active Substance: OLANZAPINE
     Indication: Schizoaffective disorder
     Dosage: UNK
  8. LITHIUM CARBONATE [Concomitant]
     Active Substance: LITHIUM CARBONATE
     Indication: Schizoaffective disorder
     Dosage: 600 MILLIGRAM
  9. DIAZEPAM [Concomitant]
     Active Substance: DIAZEPAM
     Dosage: UNK
  10. PROMETHAZINE [Concomitant]
     Active Substance: PROMETHAZINE HYDROCHLORIDE
     Dosage: UNK
  11. PROCYCLIDINE [Concomitant]
     Active Substance: PROCYCLIDINE
     Dosage: UNK
  12. CHOLECALCIFEROL [Concomitant]
     Active Substance: CHOLECALCIFEROL
     Dosage: UNK
  13. SENNA [Concomitant]
     Active Substance: SENNOSIDES
     Dosage: UNK
  14. POLYETHYLENE GLYCOLS [Concomitant]
     Active Substance: POLYETHYLENE GLYCOLS
     Dosage: UNK (SACHET)
  15. LORAZEPAM [Concomitant]
     Active Substance: LORAZEPAM
     Dosage: UNK, PRN
  16. LORAZEPAM [Concomitant]
     Active Substance: LORAZEPAM
     Dosage: UNK, PRN
  17. PROCYCLIDINE [Concomitant]
     Active Substance: PROCYCLIDINE
     Dosage: UNK, PRN

REACTIONS (3)
  - Electrocardiogram QT prolonged [Unknown]
  - Neutropenia [Recovered/Resolved]
  - Off label use [Unknown]

NARRATIVE: CASE EVENT DATE: 20250101
